FAERS Safety Report 12395654 (Version 2)
Quarter: 2016Q3

REPORT INFORMATION
  Report Type: Report from Study
  Country: US (occurrence: US)
  Receive Date: 20160523
  Receipt Date: 20160708
  Transmission Date: 20161109
  Serious: Yes (Hospitalization, Other)
  Sender: FDA-Public Use
  Company Number: US-GILEAD-2016-0213333

PATIENT
  Age: 86 Year
  Sex: Male

DRUGS (22)
  1. LEVAQUIN [Concomitant]
     Active Substance: LEVOFLOXACIN
  2. ALLOPURINOL. [Concomitant]
     Active Substance: ALLOPURINOL
  3. WELLBUTRIN [Concomitant]
     Active Substance: BUPROPION HYDROCHLORIDE
  4. LOPERAMIDE [Concomitant]
     Active Substance: LOPERAMIDE
  5. MIRTAZAPINE. [Concomitant]
     Active Substance: MIRTAZAPINE
  6. VITAMIN D                          /00107901/ [Concomitant]
     Active Substance: ERGOCALCIFEROL
  7. IDELALISIB [Suspect]
     Active Substance: IDELALISIB
     Indication: EXTRANODAL MARGINAL ZONE B-CELL LYMPHOMA (MALT TYPE)
     Dosage: 150 MG, BID
     Route: 048
     Dates: start: 20160414
  8. TRAZODONE [Concomitant]
     Active Substance: TRAZODONE HYDROCHLORIDE
  9. VITAMIN B12 [Concomitant]
     Active Substance: CYANOCOBALAMIN
  10. TYLENOL [Concomitant]
     Active Substance: ACETAMINOPHEN
  11. DIGOXIN. [Concomitant]
     Active Substance: DIGOXIN
  12. SENNA                              /00142201/ [Concomitant]
     Active Substance: SENNA LEAF
  13. INSULINUM LISPRO ISOPHANUM [Concomitant]
  14. ERTAPENEM [Concomitant]
     Active Substance: ERTAPENEM
  15. FUROSEMIDE. [Concomitant]
     Active Substance: FUROSEMIDE
  16. POTASSIUM CHLORIDE. [Concomitant]
     Active Substance: POTASSIUM CHLORIDE
  17. PANCRELIPASE. [Concomitant]
     Active Substance: PANCRELIPASE
  18. WARFARIN [Concomitant]
     Active Substance: WARFARIN
  19. METOPROLOL. [Concomitant]
     Active Substance: METOPROLOL
  20. PROTONIX                           /00661201/ [Concomitant]
     Active Substance: OMEPRAZOLE
  21. CALCIUM CARBONATE. [Concomitant]
     Active Substance: CALCIUM CARBONATE
  22. GLUCAGON. [Concomitant]
     Active Substance: GLUCAGON

REACTIONS (4)
  - Disease progression [Unknown]
  - Pyelonephritis [Unknown]
  - Pneumonia [Unknown]
  - Urinary tract infection [Unknown]

NARRATIVE: CASE EVENT DATE: 2016
